FAERS Safety Report 8483012-0 (Version None)
Quarter: 2012Q3

REPORT INFORMATION
  Report Type: 
  Country: None (occurrence: None)
  Receive Date: 20120702
  Receipt Date: 20120628
  Transmission Date: 20120928
  Serious: Yes (Death)
  Sender: FDA-Public Use
  Company Number: VE-PFIZER INC-2012156746

PATIENT
  Sex: Female

DRUGS (3)
  1. CADUET [Concomitant]
     Dosage: 5/20MG
  2. NORVASC [Concomitant]
     Dosage: 5 MG, UNK
  3. LYRICA [Suspect]
     Dosage: 75 MG, UNK

REACTIONS (1)
  - DEATH [None]
